FAERS Safety Report 4620386-2 (Version None)
Quarter: 2005Q1

REPORT INFORMATION
  Report Type: 
  Country: None (occurrence: None)
  Receive Date: 20050324
  Receipt Date: 20050311
  Transmission Date: 20050727
  Serious: Yes (Other)
  Sender: FDA-Public Use
  Company Number: 2005044442

PATIENT
  Age: 35 Year
  Sex: Male
  Weight: 97.5234 kg

DRUGS (10)
  1. NEURONTIN [Suspect]
     Indication: EPILEPSY
     Dosage: 300 MG (300 MG, 1 IN 1 D), ORAL
     Route: 048
     Dates: start: 20020401, end: 20041002
  2. NEURONTIN [Suspect]
     Indication: NEUROPATHY
     Dosage: 300 MG (300 MG, 1 IN 1 D), ORAL
     Route: 048
     Dates: start: 20020401, end: 20041002
  3. DEXTROPROPOXYPHENE HYDROCHLORIDE (DEXTROPROPOXYPHENE HYDROCHLORIDE) [Concomitant]
  4. PROPACET 100 [Concomitant]
  5. TRAMADOL HCL [Concomitant]
  6. ESOMEPRAZOLE (ESOMEPRAZOLE) [Concomitant]
  7. LANSOPRAZOLE [Concomitant]
  8. RABEPRAZOLE SODIUM [Concomitant]
  9. PANTOPRAZOLE (PANTOPRAZOLE) [Concomitant]
  10. ASPIRIN [Concomitant]

REACTIONS (14)
  - ABDOMINAL DISTENSION [None]
  - BLOOD CHOLESTEROL INCREASED [None]
  - BOWEL SOUNDS ABNORMAL [None]
  - CONVULSION [None]
  - DYSGEUSIA [None]
  - HAEMATEMESIS [None]
  - HAEMORRHAGE [None]
  - HAIR COLOUR CHANGES [None]
  - MELAENA [None]
  - MUSCLE DISORDER [None]
  - MUSCLE TWITCHING [None]
  - PHARMACEUTICAL PRODUCT COMPLAINT [None]
  - VOMITING [None]
  - WEIGHT FLUCTUATION [None]
